FAERS Safety Report 15576128 (Version 3)
Quarter: 2018Q4

REPORT INFORMATION
  Report Type: Report from Study
  Country: JP (occurrence: JP)
  Receive Date: 20181101
  Receipt Date: 20181120
  Transmission Date: 20190205
  Serious: Yes (Hospitalization)
  Sender: FDA-Public Use
  Company Number: JP-ASTRAZENECA-2018SF42102

PATIENT
  Age: 76 Year
  Sex: Male

DRUGS (10)
  1. ALIMTA [Suspect]
     Active Substance: PEMETREXED DISODIUM
     Indication: NON-SMALL CELL LUNG CANCER
     Dosage: NUMBER OF SEPARATE DOSAGES UNKNOWN
     Route: 041
  2. FENTANYL CITRATE. [Concomitant]
     Active Substance: FENTANYL CITRATE
     Dosage: 2.5MG AS REQUIRED
  3. OXYCODONE [Suspect]
     Active Substance: OXYCODONE
     Route: 048
     Dates: end: 20181016
  4. ZYPREXA [Suspect]
     Active Substance: OLANZAPINE
     Route: 065
     Dates: end: 20181018
  5. CARBOPLATIN. [Suspect]
     Active Substance: CARBOPLATIN
     Indication: NON-SMALL CELL LUNG CANCER
     Dosage: NUMBER OF SEPARATE DOSAGES UNKNOWN
     Route: 041
  6. TAGRISSO [Suspect]
     Active Substance: OSIMERTINIB
     Indication: NON-SMALL CELL LUNG CANCER
     Route: 048
     Dates: end: 20181018
  7. PROCHLORPERAZINE MALEATE. [Suspect]
     Active Substance: PROCHLORPERAZINE MALEATE
     Route: 065
     Dates: end: 20181018
  8. CALONAL [Concomitant]
     Active Substance: ACETAMINOPHEN
  9. CELECOX [Concomitant]
     Active Substance: CELECOXIB
  10. OXINORM (OXYCODONE HYDROCHLORIDE) [Concomitant]
     Active Substance: OXYCODONE HYDROCHLORIDE
     Dosage: 2.5MG AS REQUIRED

REACTIONS (8)
  - Joint abscess [Recovering/Resolving]
  - Cholelithiasis [Recovered/Resolved]
  - Bile duct stone [Recovered/Resolved]
  - Muscle haemorrhage [Recovering/Resolving]
  - Rash [Recovered/Resolved]
  - Muscle abscess [Recovering/Resolving]
  - Cholangitis [Recovered/Resolved]
  - Nausea [Recovered/Resolved]

NARRATIVE: CASE EVENT DATE: 20181017
